FAERS Safety Report 7586854-9 (Version None)
Quarter: 2011Q3

REPORT INFORMATION
  Report Type: 
  Country: None (occurrence: None)
  Receive Date: 20110701
  Receipt Date: 20110322
  Transmission Date: 20111222
  Serious: Yes (Hospitalization)
  Sender: FDA-Public Use
  Company Number: ES-ASTRAZENECA-2011SE16213

PATIENT
  Age: 39 Year
  Sex: Male

DRUGS (14)
  1. TACROLIMUS [Interacting]
     Indication: IMMUNOSUPPRESSION
     Dosage: DOSE INCREASED
  2. RALTEGRAVIR [Concomitant]
     Indication: HIV INFECTION
     Dates: start: 20100416
  3. ABACAVIR [Concomitant]
     Indication: HIV INFECTION
     Dates: start: 20100416, end: 20100524
  4. STEROIDS [Interacting]
     Indication: IMMUNOSUPPRESSION
     Dosage: DOSE INCREASED
  5. TRUVADA [Concomitant]
     Dosage: ONE PILL ON ALTERNATE  DAYS
     Dates: start: 20100621
  6. ROSUVASTATIN [Suspect]
     Indication: DYSLIPIDAEMIA
     Route: 048
     Dates: start: 20100503, end: 20100524
  7. TACROLIMUS [Interacting]
     Dates: start: 20100608
  8. STEROIDS [Interacting]
     Dates: start: 20100608
  9. MYCOPHENOLATE MEFETIL [Interacting]
     Dates: start: 20100608
  10. ROSUVASTATIN [Interacting]
     Route: 048
  11. ROSUVASTATIN [Interacting]
     Route: 048
     Dates: start: 20100524, end: 20100621
  12. MYCOPHENOLATE MEFETIL [Interacting]
     Indication: IMMUNOSUPPRESSION
     Dosage: DOSE INCREASED
  13. LAMIVUDINE [Concomitant]
     Indication: HIV INFECTION
     Dates: start: 20100416, end: 20100524
  14. TRUVADA [Concomitant]
     Indication: RENAL IMPAIRMENT
     Dates: start: 20100524, end: 20100621

REACTIONS (5)
  - ACIDOSIS [None]
  - RHABDOMYOLYSIS [None]
  - DYSLIPIDAEMIA [None]
  - RENAL IMPAIRMENT [None]
  - DRUG INTERACTION [None]
